FAERS Safety Report 5149247-X (Version None)
Quarter: 2006Q4

REPORT INFORMATION
  Report Type: 
  Country: None (occurrence: None)
  Receive Date: 20061113
  Receipt Date: 20050928
  Transmission Date: 20070319
  Serious: No
  Sender: FDA-Public Use
  Company Number: 419320

PATIENT
  Age: 76 Year
  Sex: Female

DRUGS (3)
  1. COREG [Suspect]
     Indication: HYPERTENSION
     Dosage: 3.125MG TWICE PER DAY
     Route: 048
     Dates: start: 20050601
  2. NORVASC [Concomitant]
  3. PRAVACHOL [Concomitant]

REACTIONS (1)
  - FLATULENCE [None]
